FAERS Safety Report 4431716-9 (Version None)
Quarter: 2004Q3

REPORT INFORMATION
  Report Type: 
  Country: None (occurrence: None)
  Receive Date: 20040820
  Receipt Date: 20040820
  Transmission Date: 20050211
  Serious: Yes (Death)
  Sender: FDA-Public Use
  Company Number: None

PATIENT
  Age: 23 Year
  Sex: Male
  Weight: 143.7903 kg

DRUGS (5)
  1. ZITHROMAX [Suspect]
     Indication: LOBAR PNEUMONIA
     Dosage: 500 MG Q DAY PO [ONE DOSE]
     Route: 048
     Dates: start: 20030909
  2. GLUCOPHAGE XL [Concomitant]
  3. PRINIVIL [Concomitant]
  4. MAXZIDE [Concomitant]
  5. LIPITOR [Concomitant]

REACTIONS (6)
  - COMA [None]
  - DIZZINESS [None]
  - FATIGUE [None]
  - LOBAR PNEUMONIA [None]
  - PHARYNGOLARYNGEAL PAIN [None]
  - VERTIGO [None]
